FAERS Safety Report 9129492 (Version 1)
Quarter: 2013Q1

REPORT INFORMATION
  Report Type: Report from Study
  Country: JP (occurrence: JP)
  Receive Date: 20130228
  Receipt Date: 20130228
  Transmission Date: 20140127
  Serious: Yes (Other)
  Sender: FDA-Public Use
  Company Number: JP-GLAXOSMITHKLINE-B0869848A

PATIENT
  Age: 69 Year
  Sex: Female
  Weight: 63 kg

DRUGS (2)
  1. TYKERB [Suspect]
     Indication: BREAST CANCER
     Route: 048
     Dates: start: 20100623, end: 20110413
  2. XELODA [Suspect]
     Indication: BREAST CANCER
     Route: 048
     Dates: start: 20100623, end: 20110413

REACTIONS (1)
  - Blister [Recovering/Resolving]
